FAERS Safety Report 20992241 (Version 5)
Quarter: 2022Q4

REPORT INFORMATION
  Report Type: Spontaneous
  Country: US (occurrence: US)
  Receive Date: 20220622
  Receipt Date: 20221215
  Transmission Date: 20230113
  Serious: Yes (Hospitalization)
  Sender: FDA-Public Use
  Company Number: US-BRISTOL-MYERS SQUIBB COMPANY-2022-062119

PATIENT
  Age: 57 Year
  Sex: Female

DRUGS (2)
  1. REVLIMID [Suspect]
     Active Substance: LENALIDOMIDE
     Indication: Plasma cell myeloma
     Dosage: MOUTH EVERY NIGHT AT BEDTIME ,DO NOT BREAK, CHEW, OR OPEN CAPSULES
     Route: 048
     Dates: start: 20220129
  2. REVLIMID [Suspect]
     Active Substance: LENALIDOMIDE
     Indication: Fungal skin infection

REACTIONS (3)
  - Illness [Unknown]
  - Fatigue [Unknown]
  - Respiratory tract infection [Unknown]

NARRATIVE: CASE EVENT DATE: 20221005
